FAERS Safety Report 8228168-X (Version None)
Quarter: 2012Q1

REPORT INFORMATION
  Report Type: 
  Country: None (occurrence: None)
  Receive Date: 20120322
  Receipt Date: 20111212
  Transmission Date: 20120608
  Serious: Yes (Other)
  Sender: FDA-Public Use
  Company Number: US-BRISTOL-MYERS SQUIBB COMPANY-16285090

PATIENT
  Age: 57 Year
  Sex: Male

DRUGS (3)
  1. CAMPTOSAR [Concomitant]
  2. FLUOROURACIL [Concomitant]
  3. ERBITUX [Suspect]
     Indication: COLON CANCER

REACTIONS (1)
  - DERMATITIS ACNEIFORM [None]
